FAERS Safety Report 6720043-2 (Version None)
Quarter: 2010Q2

REPORT INFORMATION
  Report Type: 
  Country: None (occurrence: None)
  Receive Date: 20100507
  Receipt Date: 20091209
  Transmission Date: 20101027
  Serious: Yes (Death)
  Sender: FDA-Public Use
  Company Number: LEO-2010-00324

PATIENT
  Age: 51 Year
  Sex: Female
  Weight: 100 kg

DRUGS (2)
  1. INNOHEP [Suspect]
     Indication: THROMBOSIS PROPHYLAXIS
     Dosage: 3500 IU (3500 IU, 1 IN 1 D) SUBCUTANEOUS
     Route: 058
     Dates: start: 20080219, end: 20080223
  2. METAMIZOL (METAMIZOLE MAGNESIUM) [Concomitant]

REACTIONS (2)
  - OFF LABEL USE [None]
  - PULMONARY EMBOLISM [None]
